FAERS Safety Report 22371686 (Version 12)
Quarter: 2024Q1

REPORT INFORMATION
  Report Type: Spontaneous
  Country: US (occurrence: US)
  Receive Date: 20230526
  Receipt Date: 20240223
  Transmission Date: 20240409
  Serious: Yes (Hospitalization, Other)
  Sender: FDA-Public Use
  Company Number: US-PFIZER INC-PV202300091723

PATIENT
  Age: 73 Year
  Sex: Female
  Weight: 91.63 kg

DRUGS (5)
  1. IBRANCE [Suspect]
     Active Substance: PALBOCICLIB
     Indication: Breast cancer metastatic
     Dosage: 125 MG, CYCLIC (ONCE A DAY, FOR 3 WEEKS)
     Dates: start: 20230530
  2. IBRANCE [Suspect]
     Active Substance: PALBOCICLIB
     Dosage: 125MG BY MOUTH DAILY FOR 3 WEEKS, THEN 1 WEEK OFF.
     Route: 048
     Dates: start: 202305
  3. IBRANCE [Suspect]
     Active Substance: PALBOCICLIB
     Dosage: ONCE A DAY. I TAKE IT FOR 3 WEEKS AND THEN I DO NOT TAKE IT FOR ONE WEEK AND THEN I START UP AGAIN
     Route: 048
  4. ANASTROZOLE [Concomitant]
     Active Substance: ANASTROZOLE
     Dosage: 1 MG, 1X/DAY
  5. BENAZEPRIL [Concomitant]
     Active Substance: BENAZEPRIL HYDROCHLORIDE
     Indication: Hypertension
     Dosage: UNK

REACTIONS (26)
  - Dermatitis [Recovering/Resolving]
  - White blood cell count decreased [Not Recovered/Not Resolved]
  - Neoplasm recurrence [Unknown]
  - Malaise [Unknown]
  - Musculoskeletal stiffness [Unknown]
  - Feeling abnormal [Unknown]
  - Fatigue [Unknown]
  - Pyrexia [Unknown]
  - Hypersensitivity [Unknown]
  - Pruritus [Unknown]
  - Gastrointestinal disorder [Unknown]
  - Emotional disorder [Unknown]
  - Abdominal discomfort [Recovering/Resolving]
  - Sexual dysfunction [Not Recovered/Not Resolved]
  - Constipation [Unknown]
  - Gait disturbance [Unknown]
  - Joint dislocation [Unknown]
  - Eating disorder [Unknown]
  - Nausea [Unknown]
  - Product taste abnormal [Unknown]
  - Diarrhoea [Unknown]
  - Abdominal pain [Unknown]
  - Decreased appetite [Unknown]
  - Eructation [Unknown]
  - Functional gastrointestinal disorder [Unknown]
  - Illness [Unknown]

NARRATIVE: CASE EVENT DATE: 20231101
